FAERS Safety Report 10039649 (Version 1)
Quarter: 2014Q1

REPORT INFORMATION
  Report Type: Report from Study
  Country: CA (occurrence: CA)
  Receive Date: 20140326
  Receipt Date: 20140326
  Transmission Date: 20141002
  Serious: Yes (Other)
  Sender: FDA-Public Use
  Company Number: CA-JNJFOC-20140311204

PATIENT
  Age: 78 Year
  Sex: Male
  Weight: 82 kg

DRUGS (12)
  1. REMICADE [Suspect]
     Indication: COLITIS ULCERATIVE
     Route: 042
     Dates: start: 20100309
  2. DILTIAZEM [Concomitant]
     Route: 065
  3. VITAMIN D [Concomitant]
     Route: 065
  4. SALOFALK [Concomitant]
     Dosage: 500MG X 4
     Route: 065
  5. ACTONEL [Concomitant]
     Route: 048
  6. CALCIUM [Concomitant]
     Route: 065
  7. MULTIVITAMIN [Concomitant]
     Route: 065
  8. PLAVIX [Concomitant]
     Route: 048
  9. LIPITOR [Concomitant]
     Route: 065
  10. BENADRYL [Concomitant]
     Indication: PREMEDICATION
     Route: 048
  11. TYLENOL [Concomitant]
     Indication: PREMEDICATION
     Route: 048
  12. HYDROCORTISONE [Concomitant]
     Indication: PREMEDICATION
     Route: 042

REACTIONS (1)
  - Basal cell carcinoma [Unknown]
